FAERS Safety Report 7997376-5 (Version None)
Quarter: 2011Q4

REPORT INFORMATION
  Report Type: 
  Country: None (occurrence: None)
  Receive Date: 20111221
  Receipt Date: 20111212
  Transmission Date: 20120403
  Serious: Yes (Hospitalization, Other)
  Sender: FDA-Public Use
  Company Number: US-BAYER-2011-022531

PATIENT
  Sex: Female
  Weight: 77 kg

DRUGS (8)
  1. YAZ [Suspect]
     Indication: PREMENSTRUAL SYNDROME
  2. PENICILLIN VK [Concomitant]
     Dosage: 500 MG, UNK
     Dates: start: 20090202
  3. HYDROCODONE BITARTRATE AND ACETAMINOPHEN [Concomitant]
     Dosage: UNK
     Dates: start: 20090414
  4. PHENTERMINE [Concomitant]
     Dosage: 30 MG, UNK
     Dates: start: 20090108
  5. ZANTAC [Concomitant]
     Dosage: 150 MG, DAILY
  6. YAZ [Suspect]
     Indication: CONTRACEPTION
     Dosage: UNK
     Dates: start: 20071201, end: 20091101
  7. PANTOPRAZOLE [Concomitant]
     Dosage: 40 MG, UNK
     Dates: start: 20090414
  8. ALBUTEROL [Concomitant]

REACTIONS (5)
  - PROCEDURAL PAIN [None]
  - GALLBLADDER DISORDER [None]
  - CHOLECYSTITIS CHRONIC [None]
  - ABDOMINAL PAIN [None]
  - DYSPEPSIA [None]
